FAERS Safety Report 13181022 (Version 1)
Quarter: 2017Q1

REPORT INFORMATION
  Report Type: Spontaneous
  Country: US (occurrence: US)
  Receive Date: 20170202
  Receipt Date: 20170202
  Transmission Date: 20170428
  Serious: No
  Sender: FDA-Public Use
  Company Number: US-SMITH AND NEPHEW, INC-2016SMT00311

PATIENT
  Age: 75 Year
  Sex: Male

DRUGS (7)
  1. REGRANEX [Suspect]
     Active Substance: BECAPLERMIN
     Indication: DIABETIC FOOT
     Dosage: UNK, TWICE
     Route: 061
     Dates: start: 20160319, end: 20160323
  2. PLETAL [Concomitant]
     Active Substance: CILOSTAZOL
  3. K-DUR [Concomitant]
     Active Substance: POTASSIUM CHLORIDE
  4. INSULIN [Concomitant]
     Active Substance: INSULIN NOS
  5. PLAVIX [Concomitant]
     Active Substance: CLOPIDOGREL BISULFATE
     Dosage: UNK
  6. CARVEDILOL. [Concomitant]
     Active Substance: CARVEDILOL
  7. NORVASC [Concomitant]
     Active Substance: AMLODIPINE BESYLATE

REACTIONS (1)
  - Dermatitis [Recovered/Resolved]

NARRATIVE: CASE EVENT DATE: 20160323
